FAERS Safety Report 10486306 (Version 4)
Quarter: 2015Q3

REPORT INFORMATION
  Report Type: Spontaneous
  Country: FR (occurrence: FR)
  Receive Date: 20141001
  Receipt Date: 20150916
  Transmission Date: 20151125
  Serious: Yes (Hospitalization)
  Sender: FDA-Public Use
  Company Number: FR-MERCK-1409FRA013368

PATIENT
  Age: 41 Year
  Sex: Female

DRUGS (20)
  1. AUGMENTIN [Suspect]
     Active Substance: AMOXICILLIN\CLAVULANATE POTASSIUM
     Indication: RAOULTELLA ORNITHINOLYTICA INFECTION
     Dosage: 1 G, TID
     Route: 048
     Dates: start: 20140623, end: 20140630
  2. VINCRISTINE TEVA [Suspect]
     Active Substance: VINCRISTINE
     Indication: LEUKAEMIA
     Dosage: 2 MG, QD
     Route: 042
     Dates: start: 20140610, end: 20140610
  3. TAZOCILLINE [Suspect]
     Active Substance: PIPERACILLIN SODIUM\TAZOBACTAM SODIUM
     Dosage: 1 DF, QID
     Route: 042
     Dates: start: 20140615, end: 20140721
  4. ENDOXAN [Suspect]
     Active Substance: CYCLOPHOSPHAMIDE
     Indication: LEUKAEMIA
     Dosage: 520 MG, QD
     Route: 042
     Dates: start: 20140607, end: 20140609
  5. ZELITREX [Suspect]
     Active Substance: VALACYCLOVIR HYDROCHLORIDE
     Indication: INFECTION PROPHYLAXIS
     Dosage: 500 MG, BID
     Route: 048
     Dates: start: 20140607, end: 20140706
  6. LUTERAN [Suspect]
     Active Substance: CHLORMADINONE ACETATE
     Dosage: UNK
     Route: 048
     Dates: start: 201405
  7. AMLOR [Suspect]
     Active Substance: AMLODIPINE BESYLATE
     Dosage: 5 MG, BID
     Route: 048
     Dates: start: 20140705
  8. NOXAFIL [Suspect]
     Active Substance: POSACONAZOLE
     Indication: INFECTION PROPHYLAXIS
     Dosage: 200 MG, TID
     Route: 048
     Dates: start: 20140607, end: 20140706
  9. METHOTREXATE [Suspect]
     Active Substance: METHOTREXATE
     Indication: LEUKAEMIA
     Dosage: 15 MG, ONCE
     Route: 037
     Dates: start: 20140616, end: 20140616
  10. CYTARABINE. [Suspect]
     Active Substance: CYTARABINE
     Indication: LEUKAEMIA
     Dosage: 40 MG, ONCE
     Route: 037
     Dates: start: 20140620, end: 20140620
  11. DEPAKINE CHRONO [Concomitant]
     Active Substance: VALPROATE SODIUM
     Dosage: TOTAL DAILY DOSE 1 DF
     Route: 048
  12. DEXAMETHASONE. [Suspect]
     Active Substance: DEXAMETHASONE
     Indication: LEUKAEMIA
     Dosage: 20 MG, BID
     Route: 042
     Dates: start: 20140607, end: 20140610
  13. EXACYL [Suspect]
     Active Substance: TRANEXAMIC ACID
     Dosage: UNK
     Route: 048
     Dates: start: 201405
  14. UROMITEXAN [Suspect]
     Active Substance: MESNA
     Dosage: 1 DF, TID
     Route: 042
     Dates: start: 20140607, end: 20140608
  15. PENTACARINAT [Suspect]
     Active Substance: PENTAMIDINE ISETHIONATE
     Indication: INFECTION PROPHYLAXIS
     Dosage: UNK
     Route: 045
     Dates: start: 20140606, end: 20140606
  16. METHYLPREDNISOLONE. [Suspect]
     Active Substance: METHYLPREDNISOLONE
     Indication: LEUKAEMIA
     Dosage: 40 MG, ONCE
     Route: 037
     Dates: start: 20140616, end: 20140616
  17. CYTARABINE. [Suspect]
     Active Substance: CYTARABINE
     Indication: LEUKAEMIA
     Dosage: DOSE 3500MG TWICE PER HOUR
     Route: 042
     Dates: start: 20140627, end: 20140630
  18. IDARUBICIN HYDROCHLORIDE. [Suspect]
     Active Substance: IDARUBICIN HYDROCHLORIDE
     Indication: LEUKAEMIA
     Dosage: 21 MG, QD
     Route: 042
     Dates: start: 20140627, end: 20140629
  19. ROCEPHIN [Suspect]
     Active Substance: CEFTRIAXONE SODIUM
     Dosage: 1 G, QD
     Route: 042
     Dates: start: 20140702, end: 20140713
  20. INEXIUM (ESOMEPRAZOLE MAGNESIUM) [Concomitant]
     Active Substance: ESOMEPRAZOLE MAGNESIUM
     Dosage: 40 MG, QD
     Route: 048

REACTIONS (2)
  - Balance disorder [Recovering/Resolving]
  - Axonal neuropathy [Not Recovered/Not Resolved]

NARRATIVE: CASE EVENT DATE: 20140715
